FAERS Safety Report 9637921 (Version 1)
Quarter: 2013Q4

REPORT INFORMATION
  Report Type: Spontaneous
  Country: BG (occurrence: BG)
  Receive Date: 20131022
  Receipt Date: 20131022
  Transmission Date: 20140711
  Serious: Yes (Other)
  Sender: FDA-Public Use
  Company Number: BG-ASTRAZENECA-2013SE76402

PATIENT
  Age: 73 Year
  Sex: Male

DRUGS (10)
  1. BRILIQUE [Suspect]
     Indication: ACUTE MYOCARDIAL INFARCTION
     Dosage: 2 TABLETS 90 MG - LOADING DOSE
     Route: 048
  2. BRILIQUE [Suspect]
     Indication: ACUTE MYOCARDIAL INFARCTION
     Route: 048
  3. HEPARIN [Concomitant]
     Indication: ACUTE MYOCARDIAL INFARCTION
     Route: 040
  4. HEPARIN [Concomitant]
     Indication: ACUTE MYOCARDIAL INFARCTION
     Route: 042
  5. ACETYLSALICYLIC ACID [Concomitant]
     Indication: ACUTE MYOCARDIAL INFARCTION
     Route: 048
  6. NITROGLYCERIN [Concomitant]
     Indication: ACUTE MYOCARDIAL INFARCTION
     Dosage: 50 MG/50 ML - 3 ML/H I.V.
     Route: 042
  7. METOPROLOL SUCCINATE [Concomitant]
     Indication: ACUTE MYOCARDIAL INFARCTION
     Route: 048
  8. ZOFENOPRIL [Concomitant]
     Indication: ACUTE MYOCARDIAL INFARCTION
     Route: 048
  9. ROSUVASTATIN [Concomitant]
     Indication: ACUTE MYOCARDIAL INFARCTION
     Route: 048
  10. TORASEMIDE [Concomitant]
     Indication: NEPHROPATHY TOXIC
     Dosage: 0.9 PERCENT NACL 500 ML + 2 AMP. NAHCO3 + 10 MG TORASEMIDE.

REACTIONS (2)
  - Angina pectoris [Unknown]
  - Dyspnoea [Unknown]
